FAERS Safety Report 20440295 (Version 1)
Quarter: 2022Q1

REPORT INFORMATION
  Report Type: Spontaneous
  Country: US (occurrence: US)
  Receive Date: 20220207
  Receipt Date: 20220207
  Transmission Date: 20220423
  Serious: No
  Sender: FDA-Public Use
  Company Number: US-009507513-2201USA006068

PATIENT
  Age: 58 Year
  Sex: Female

DRUGS (3)
  1. KEYTRUDA [Suspect]
     Active Substance: PEMBROLIZUMAB
     Indication: Metastatic neoplasm
     Dosage: 2 MILLIGRAM/KILOGRAM, Q3W; 2 CYCLES
     Route: 042
     Dates: start: 201602
  2. KEYTRUDA [Suspect]
     Active Substance: PEMBROLIZUMAB
     Dosage: 2 CYCLES
     Dates: start: 201605
  3. CISPLATIN;DOXORUBICIN;METHOTREXATE;VINBLASTINE [Concomitant]
     Indication: Metastatic neoplasm
     Dosage: 4 CYCLES

REACTIONS (1)
  - Drug ineffective [Not Recovered/Not Resolved]

NARRATIVE: CASE EVENT DATE: 20160301
